FAERS Safety Report 10409652 (Version 1)
Quarter: 2014Q3

REPORT INFORMATION
  Report Type: Spontaneous
  Country: US (occurrence: None)
  Receive Date: 20140822
  Receipt Date: 20140822
  Transmission Date: 20150326
  Serious: Yes (Other)
  Sender: FDA-Public Use
  Company Number: ONY-2014-003

PATIENT
  Age: 29 Week
  Weight: 1.4 kg

DRUGS (1)
  1. INFASURF [Suspect]
     Active Substance: CALFACTANT
     Route: 039

REACTIONS (1)
  - Pulmonary haemorrhage [None]
